FAERS Safety Report 6070871-4 (Version None)
Quarter: 2009Q1

REPORT INFORMATION
  Report Type: 
  Country: None (occurrence: None)
  Receive Date: 20090209
  Receipt Date: 20081023
  Transmission Date: 20090719
  Serious: No
  Sender: FDA-Public Use
  Company Number: A0753314A

PATIENT
  Age: 45 Year
  Sex: Male

DRUGS (3)
  1. PAROXETINE HCL [Suspect]
     Indication: DEPRESSION
     Dosage: 20MG PER DAY
     Route: 048
     Dates: start: 20081008
  2. SINGULAIR [Concomitant]
  3. NASACORT [Concomitant]

REACTIONS (6)
  - ABNORMAL DREAMS [None]
  - APPETITE DISORDER [None]
  - DISTURBANCE IN ATTENTION [None]
  - HEADACHE [None]
  - INSOMNIA [None]
  - NAUSEA [None]
